FAERS Safety Report 25758469 (Version 1)
Quarter: 2025Q3

REPORT INFORMATION
  Report Type: Report from Study
  Country: EU (occurrence: EU)
  Receive Date: 20250904
  Receipt Date: 20250904
  Transmission Date: 20251020
  Serious: Yes (Other)
  Sender: UCB
  Company Number: EU-UCBSA-2025052277

PATIENT
  Sex: Male

DRUGS (1)
  1. CIMZIA [Suspect]
     Active Substance: CERTOLIZUMAB PEGOL
     Indication: Ankylosing spondylitis
     Dosage: UNK, EV 2 WEEKS(QOW)
     Route: 058
     Dates: start: 202207

REACTIONS (2)
  - Ankylosing spondylitis [Unknown]
  - Palpitations [Unknown]

NARRATIVE: CASE EVENT DATE: 20250817
